FAERS Safety Report 22393253 (Version 2)
Quarter: 2023Q2

REPORT INFORMATION
  Report Type: Report from Study
  Country: GB (occurrence: GB)
  Receive Date: 20230601
  Receipt Date: 20230602
  Transmission Date: 20230722
  Serious: Yes (Hospitalization)
  Sender: FDA-Public Use
  Company Number: GB-CELLTRION INC.-2023GB010982

PATIENT

DRUGS (137)
  1. TRASTUZUMAB [Suspect]
     Active Substance: TRASTUZUMAB
     Indication: HER2 positive breast cancer
     Dosage: 567 MG, 1 TOTAL (LOADING DOSE)
     Route: 042
     Dates: start: 20150811, end: 20150811
  2. TRASTUZUMAB [Suspect]
     Active Substance: TRASTUZUMAB
     Dosage: 567 MG, 1 TOTAL (LOADING DOSE)
     Route: 042
     Dates: start: 20150811, end: 20150811
  3. TRASTUZUMAB [Suspect]
     Active Substance: TRASTUZUMAB
     Dosage: 567 MG, 1 TOTAL (LOADING DOSE)
     Route: 042
     Dates: start: 20150811, end: 20150811
  4. TRASTUZUMAB [Suspect]
     Active Substance: TRASTUZUMAB
     Dosage: 567 MG, 1 TOTAL (LOADING DOSE)
     Route: 042
     Dates: start: 20150811, end: 20150811
  5. TRASTUZUMAB [Suspect]
     Active Substance: TRASTUZUMAB
     Dosage: 567 MG, 1 TOTAL (LOADING DOSE)
     Route: 042
     Dates: start: 20150811, end: 20150811
  6. TRASTUZUMAB [Suspect]
     Active Substance: TRASTUZUMAB
     Dosage: 420 MG, 3/WEEK (CUMULATIVE DOSE TO FIRST REACTION: 1960.8334 MG)
     Route: 042
     Dates: start: 20150903, end: 20151015
  7. TRASTUZUMAB [Suspect]
     Active Substance: TRASTUZUMAB
     Dosage: 420 MG, 3/WEEK (CUMULATIVE DOSE TO FIRST REACTION: 1960.8334 MG)
     Route: 042
     Dates: start: 20150903, end: 20151015
  8. TRASTUZUMAB [Suspect]
     Active Substance: TRASTUZUMAB
     Dosage: 420 MG, 3/WEEK (CUMULATIVE DOSE TO FIRST REACTION: 1960.8334 MG)
     Route: 042
     Dates: start: 20150903, end: 20151015
  9. TRASTUZUMAB [Suspect]
     Active Substance: TRASTUZUMAB
     Dosage: 420 MG, 3/WEEK (CUMULATIVE DOSE TO FIRST REACTION: 1960.8334 MG)
     Route: 042
     Dates: start: 20150903, end: 20151015
  10. TRASTUZUMAB [Suspect]
     Active Substance: TRASTUZUMAB
     Dosage: 420 MG, 3/WEEK (CUMULATIVE DOSE TO FIRST REACTION: 1960.8334 MG)
     Route: 042
     Dates: start: 20150903, end: 20151015
  11. TRASTUZUMAB [Suspect]
     Active Substance: TRASTUZUMAB
     Dosage: 441 MG, 3/WEEK (CUMULATIVE DOSE TO FIRST REACTION:  588.0 MG)
     Route: 042
     Dates: start: 20151112
  12. TRASTUZUMAB [Suspect]
     Active Substance: TRASTUZUMAB
     Dosage: 441 MG, 3/WEEK (CUMULATIVE DOSE TO FIRST REACTION:  588.0 MG)
     Route: 042
     Dates: start: 20151112
  13. TRASTUZUMAB [Suspect]
     Active Substance: TRASTUZUMAB
     Dosage: 441 MG, 3/WEEK (CUMULATIVE DOSE TO FIRST REACTION:  588.0 MG)
     Route: 042
     Dates: start: 20151112
  14. TRASTUZUMAB [Suspect]
     Active Substance: TRASTUZUMAB
     Dosage: 441 MG, 3/WEEK (CUMULATIVE DOSE TO FIRST REACTION:  588.0 MG)
     Route: 042
     Dates: start: 20151112
  15. TRASTUZUMAB [Suspect]
     Active Substance: TRASTUZUMAB
     Dosage: 441 MG, 3/WEEK (CUMULATIVE DOSE TO FIRST REACTION:  588.0 MG)
     Route: 042
     Dates: start: 20151112
  16. TRASTUZUMAB [Suspect]
     Active Substance: TRASTUZUMAB
     Dosage: 567 MG, 1 TOTAL (LOADING DOSE)
     Route: 042
     Dates: start: 20160107, end: 20160107
  17. TRASTUZUMAB [Suspect]
     Active Substance: TRASTUZUMAB
     Dosage: 567 MG, 1 TOTAL (LOADING DOSE)
     Route: 042
     Dates: start: 20160107, end: 20160107
  18. TRASTUZUMAB [Suspect]
     Active Substance: TRASTUZUMAB
     Dosage: 567 MG, 1 TOTAL (LOADING DOSE)
     Route: 042
     Dates: start: 20160107, end: 20160107
  19. TRASTUZUMAB [Suspect]
     Active Substance: TRASTUZUMAB
     Dosage: 567 MG, 1 TOTAL (LOADING DOSE)
     Route: 042
     Dates: start: 20160107, end: 20160107
  20. TRASTUZUMAB [Suspect]
     Active Substance: TRASTUZUMAB
     Dosage: 567 MG, 1 TOTAL (LOADING DOSE)
     Route: 042
     Dates: start: 20160107, end: 20160107
  21. TRASTUZUMAB [Suspect]
     Active Substance: TRASTUZUMAB
     Dosage: 441 MG, 3/WEEK (CUMULATIVE DOSE TO FIRST REACTION: 1008.0 MG)
     Route: 042
     Dates: start: 20160127, end: 20161119
  22. TRASTUZUMAB [Suspect]
     Active Substance: TRASTUZUMAB
     Dosage: 441 MG, 3/WEEK (CUMULATIVE DOSE TO FIRST REACTION: 1008.0 MG)
     Route: 042
     Dates: start: 20160127, end: 20161119
  23. TRASTUZUMAB [Suspect]
     Active Substance: TRASTUZUMAB
     Dosage: 441 MG, 3/WEEK (CUMULATIVE DOSE TO FIRST REACTION: 1008.0 MG)
     Route: 042
     Dates: start: 20160127, end: 20161119
  24. TRASTUZUMAB [Suspect]
     Active Substance: TRASTUZUMAB
     Dosage: 441 MG, 3/WEEK (CUMULATIVE DOSE TO FIRST REACTION: 1008.0 MG)
     Route: 042
     Dates: start: 20160127, end: 20161119
  25. TRASTUZUMAB [Suspect]
     Active Substance: TRASTUZUMAB
     Dosage: 441 MG, 3/WEEK (CUMULATIVE DOSE TO FIRST REACTION: 1008.0 MG)
     Route: 042
     Dates: start: 20160127, end: 20161119
  26. TRASTUZUMAB [Suspect]
     Active Substance: TRASTUZUMAB
     Dosage: 693 MG (LOADING DOSE)
     Route: 042
     Dates: start: 20171120
  27. TRASTUZUMAB [Suspect]
     Active Substance: TRASTUZUMAB
     Dosage: 693 MG (LOADING DOSE)
     Route: 042
     Dates: start: 20171120
  28. TRASTUZUMAB [Suspect]
     Active Substance: TRASTUZUMAB
     Dosage: 693 MG (LOADING DOSE)
     Route: 042
     Dates: start: 20171120
  29. TRASTUZUMAB [Suspect]
     Active Substance: TRASTUZUMAB
     Dosage: 693 MG (LOADING DOSE)
     Route: 042
     Dates: start: 20171120
  30. TRASTUZUMAB [Suspect]
     Active Substance: TRASTUZUMAB
     Dosage: 693 MG (LOADING DOSE)
     Route: 042
     Dates: start: 20171120
  31. TRASTUZUMAB [Suspect]
     Active Substance: TRASTUZUMAB
     Dosage: 515 MG, 4 WEEK (CUMULATIVE DOSE TO FIRST REACTION: 13463.571 MG)
     Route: 042
     Dates: start: 20171211, end: 20190329
  32. TRASTUZUMAB [Suspect]
     Active Substance: TRASTUZUMAB
     Dosage: 515 MG, 4 WEEK (CUMULATIVE DOSE TO FIRST REACTION: 13463.571 MG)
     Route: 042
     Dates: start: 20171211, end: 20190329
  33. TRASTUZUMAB [Suspect]
     Active Substance: TRASTUZUMAB
     Dosage: 515 MG, 4 WEEK (CUMULATIVE DOSE TO FIRST REACTION: 13463.571 MG)
     Route: 042
     Dates: start: 20171211, end: 20190329
  34. TRASTUZUMAB [Suspect]
     Active Substance: TRASTUZUMAB
     Dosage: 515 MG, 4 WEEK (CUMULATIVE DOSE TO FIRST REACTION: 13463.571 MG)
     Route: 042
     Dates: start: 20171211, end: 20190329
  35. TRASTUZUMAB [Suspect]
     Active Substance: TRASTUZUMAB
     Dosage: 515 MG, 4 WEEK (CUMULATIVE DOSE TO FIRST REACTION: 13463.571 MG)
     Route: 042
     Dates: start: 20171211, end: 20190329
  36. TRASTUZUMAB [Suspect]
     Active Substance: TRASTUZUMAB
     Dosage: 504 MG, 1 TOTAL
     Route: 042
     Dates: start: 20210211, end: 20210211
  37. TRASTUZUMAB [Suspect]
     Active Substance: TRASTUZUMAB
     Dosage: 504 MG, 1 TOTAL
     Route: 042
     Dates: start: 20210211, end: 20210211
  38. TRASTUZUMAB [Suspect]
     Active Substance: TRASTUZUMAB
     Dosage: 504 MG, 1 TOTAL
     Route: 042
     Dates: start: 20210211, end: 20210211
  39. TRASTUZUMAB [Suspect]
     Active Substance: TRASTUZUMAB
     Dosage: 504 MG, 1 TOTAL
     Route: 042
     Dates: start: 20210211, end: 20210211
  40. TRASTUZUMAB [Suspect]
     Active Substance: TRASTUZUMAB
     Dosage: 504 MG, 1 TOTAL
     Route: 042
     Dates: start: 20210211, end: 20210211
  41. TRASTUZUMAB [Suspect]
     Active Substance: TRASTUZUMAB
     Dosage: 378 MG, 4 WEEK (CUMULATIVE DOSE TO FIRST REACTION: 25798.5 MG)
     Route: 042
     Dates: start: 20210304, end: 20210729
  42. TRASTUZUMAB [Suspect]
     Active Substance: TRASTUZUMAB
     Dosage: 378 MG, 4 WEEK (CUMULATIVE DOSE TO FIRST REACTION: 25798.5 MG)
     Route: 042
     Dates: start: 20210304, end: 20210729
  43. TRASTUZUMAB [Suspect]
     Active Substance: TRASTUZUMAB
     Dosage: 378 MG, 4 WEEK (CUMULATIVE DOSE TO FIRST REACTION: 25798.5 MG)
     Route: 042
     Dates: start: 20210304, end: 20210729
  44. TRASTUZUMAB [Suspect]
     Active Substance: TRASTUZUMAB
     Dosage: 378 MG, 4 WEEK (CUMULATIVE DOSE TO FIRST REACTION: 25798.5 MG)
     Route: 042
     Dates: start: 20210304, end: 20210729
  45. TRASTUZUMAB [Suspect]
     Active Substance: TRASTUZUMAB
     Dosage: 378 MG, 4 WEEK (CUMULATIVE DOSE TO FIRST REACTION: 25798.5 MG)
     Route: 042
     Dates: start: 20210304, end: 20210729
  46. DOCETAXEL [Suspect]
     Active Substance: DOCETAXEL
     Indication: HER2 positive breast cancer
     Dosage: 140 MG, 3/WEEK (CUMULATIVE DOSE TO FIRST REACTION: 806.94446 MG)
     Route: 042
     Dates: start: 20150811, end: 20151203
  47. DOCETAXEL [Suspect]
     Active Substance: DOCETAXEL
     Dosage: 140 MG, 3/WEEK (CUMULATIVE DOSE TO FIRST REACTION: 806.94446 MG)
     Route: 042
     Dates: start: 20150811, end: 20151203
  48. DOCETAXEL [Suspect]
     Active Substance: DOCETAXEL
     Dosage: 140 MG, 3/WEEK (CUMULATIVE DOSE TO FIRST REACTION: 806.94446 MG)
     Route: 042
     Dates: start: 20150811, end: 20151203
  49. DOCETAXEL [Suspect]
     Active Substance: DOCETAXEL
     Dosage: 200 MG, 3/WEEK (CUMULATIVE DOSE TO FIRST REACTION: 6771.4287 MG)
     Route: 042
     Dates: start: 20171120, end: 20180101
  50. DOCETAXEL [Suspect]
     Active Substance: DOCETAXEL
     Dosage: 200 MG, 3/WEEK (CUMULATIVE DOSE TO FIRST REACTION: 6771.4287 MG)
     Route: 042
     Dates: start: 20171120, end: 20180101
  51. DOCETAXEL [Suspect]
     Active Substance: DOCETAXEL
     Dosage: 200 MG, 3/WEEK (CUMULATIVE DOSE TO FIRST REACTION: 6771.4287 MG)
     Route: 042
     Dates: start: 20171120, end: 20180101
  52. DOCETAXEL [Suspect]
     Active Substance: DOCETAXEL
     Dosage: 180 MG, 3/WEEK (CUMULATIVE DOSE TO FIRST REACTION: 6634.2856 MG)
     Route: 042
     Dates: start: 20180122
  53. DOCETAXEL [Suspect]
     Active Substance: DOCETAXEL
     Dosage: 180 MG, 3/WEEK (CUMULATIVE DOSE TO FIRST REACTION: 6634.2856 MG)
     Route: 042
     Dates: start: 20180122
  54. DOCETAXEL [Suspect]
     Active Substance: DOCETAXEL
     Dosage: 180 MG, 3/WEEK (CUMULATIVE DOSE TO FIRST REACTION: 6634.2856 MG)
     Route: 042
     Dates: start: 20180122
  55. PERTUZUMAB [Suspect]
     Active Substance: PERTUZUMAB
     Indication: HER2 positive breast cancer
     Dosage: 840 MG, 1 TOTAL (LOADING DOSE)
     Route: 042
     Dates: start: 20150811, end: 20150811
  56. PERTUZUMAB [Suspect]
     Active Substance: PERTUZUMAB
     Dosage: 840 MG, 1 TOTAL (LOADING DOSE)
     Route: 042
     Dates: start: 20150811, end: 20150811
  57. PERTUZUMAB [Suspect]
     Active Substance: PERTUZUMAB
     Dosage: 840 MG, 1 TOTAL (LOADING DOSE)
     Route: 042
     Dates: start: 20150811, end: 20150811
  58. PERTUZUMAB [Suspect]
     Active Substance: PERTUZUMAB
     Dosage: 840 MG, 1 TOTAL (LOADING DOSE)
     Route: 042
     Dates: start: 20150811, end: 20150811
  59. PERTUZUMAB [Suspect]
     Active Substance: PERTUZUMAB
     Dosage: 840 MG, 1 TOTAL (LOADING DOSE)
     Route: 042
     Dates: start: 20150811, end: 20150811
  60. PERTUZUMAB [Suspect]
     Active Substance: PERTUZUMAB
     Dosage: 420 MG, 3/WEEK (CUMULATIVE DOSE TO FIRST REACTION: 1960.8334 MG)
     Route: 042
     Dates: start: 20150903, end: 20151015
  61. PERTUZUMAB [Suspect]
     Active Substance: PERTUZUMAB
     Dosage: 420 MG, 3/WEEK (CUMULATIVE DOSE TO FIRST REACTION: 1960.8334 MG)
     Route: 042
     Dates: start: 20150903, end: 20151015
  62. PERTUZUMAB [Suspect]
     Active Substance: PERTUZUMAB
     Dosage: 420 MG, 3/WEEK (CUMULATIVE DOSE TO FIRST REACTION: 1960.8334 MG)
     Route: 042
     Dates: start: 20150903, end: 20151015
  63. PERTUZUMAB [Suspect]
     Active Substance: PERTUZUMAB
     Dosage: 420 MG, 3/WEEK (CUMULATIVE DOSE TO FIRST REACTION: 1960.8334 MG)
     Route: 042
     Dates: start: 20150903, end: 20151015
  64. PERTUZUMAB [Suspect]
     Active Substance: PERTUZUMAB
     Dosage: 420 MG, 3/WEEK (CUMULATIVE DOSE TO FIRST REACTION: 1960.8334 MG)
     Route: 042
     Dates: start: 20150903, end: 20151015
  65. PERTUZUMAB [Suspect]
     Active Substance: PERTUZUMAB
     Dosage: 840 MG (LOADING DOSE)
     Route: 042
     Dates: start: 20171120, end: 20171120
  66. PERTUZUMAB [Suspect]
     Active Substance: PERTUZUMAB
     Dosage: 840 MG (LOADING DOSE)
     Route: 042
     Dates: start: 20171120, end: 20171120
  67. PERTUZUMAB [Suspect]
     Active Substance: PERTUZUMAB
     Dosage: 840 MG (LOADING DOSE)
     Route: 042
     Dates: start: 20171120, end: 20171120
  68. PERTUZUMAB [Suspect]
     Active Substance: PERTUZUMAB
     Dosage: 840 MG (LOADING DOSE)
     Route: 042
     Dates: start: 20171120, end: 20171120
  69. PERTUZUMAB [Suspect]
     Active Substance: PERTUZUMAB
     Dosage: 840 MG (LOADING DOSE)
     Route: 042
     Dates: start: 20171120, end: 20171120
  70. PERTUZUMAB [Suspect]
     Active Substance: PERTUZUMAB
     Dosage: 420 MG, 3/WEEK (CUMULATIVE DOSE TO FIRST REACTION: 14639.9999 MG)
     Route: 042
     Dates: start: 20171211, end: 20190329
  71. PERTUZUMAB [Suspect]
     Active Substance: PERTUZUMAB
     Dosage: 420 MG, 3/WEEK (CUMULATIVE DOSE TO FIRST REACTION: 14639.9999 MG)
     Route: 042
     Dates: start: 20171211, end: 20190329
  72. PERTUZUMAB [Suspect]
     Active Substance: PERTUZUMAB
     Dosage: 420 MG, 3/WEEK (CUMULATIVE DOSE TO FIRST REACTION: 14639.9999 MG)
     Route: 042
     Dates: start: 20171211, end: 20190329
  73. PERTUZUMAB [Suspect]
     Active Substance: PERTUZUMAB
     Dosage: 420 MG, 3/WEEK (CUMULATIVE DOSE TO FIRST REACTION: 14639.9999 MG)
     Route: 042
     Dates: start: 20171211, end: 20190329
  74. PERTUZUMAB [Suspect]
     Active Substance: PERTUZUMAB
     Dosage: 420 MG, 3/WEEK (CUMULATIVE DOSE TO FIRST REACTION: 14639.9999 MG)
     Route: 042
     Dates: start: 20171211, end: 20190329
  75. PERTUZUMAB [Suspect]
     Active Substance: PERTUZUMAB
     Dosage: 840 MG, 1 TOTAL
     Route: 042
     Dates: start: 20210211, end: 20210211
  76. PERTUZUMAB [Suspect]
     Active Substance: PERTUZUMAB
     Dosage: 840 MG, 1 TOTAL
     Route: 042
     Dates: start: 20210211, end: 20210211
  77. PERTUZUMAB [Suspect]
     Active Substance: PERTUZUMAB
     Dosage: 840 MG, 1 TOTAL
     Route: 042
     Dates: start: 20210211, end: 20210211
  78. PERTUZUMAB [Suspect]
     Active Substance: PERTUZUMAB
     Dosage: 840 MG, 1 TOTAL
     Route: 042
     Dates: start: 20210211, end: 20210211
  79. PERTUZUMAB [Suspect]
     Active Substance: PERTUZUMAB
     Dosage: 840 MG, 1 TOTAL
     Route: 042
     Dates: start: 20210211, end: 20210211
  80. PERTUZUMAB [Suspect]
     Active Substance: PERTUZUMAB
     Dosage: 420 MG, 3/WEEK (CUMULATIVE DOSE TO FIRST REACTION: 38220.0 MG)
     Route: 042
     Dates: start: 20210304, end: 20210729
  81. PERTUZUMAB [Suspect]
     Active Substance: PERTUZUMAB
     Dosage: 420 MG, 3/WEEK (CUMULATIVE DOSE TO FIRST REACTION: 38220.0 MG)
     Route: 042
     Dates: start: 20210304, end: 20210729
  82. PERTUZUMAB [Suspect]
     Active Substance: PERTUZUMAB
     Dosage: 420 MG, 3/WEEK (CUMULATIVE DOSE TO FIRST REACTION: 38220.0 MG)
     Route: 042
     Dates: start: 20210304, end: 20210729
  83. PERTUZUMAB [Suspect]
     Active Substance: PERTUZUMAB
     Dosage: 420 MG, 3/WEEK (CUMULATIVE DOSE TO FIRST REACTION: 38220.0 MG)
     Route: 042
     Dates: start: 20210304, end: 20210729
  84. PERTUZUMAB [Suspect]
     Active Substance: PERTUZUMAB
     Dosage: 420 MG, 3/WEEK (CUMULATIVE DOSE TO FIRST REACTION: 38220.0 MG)
     Route: 042
     Dates: start: 20210304, end: 20210729
  85. PERTUZUMAB [Suspect]
     Active Substance: PERTUZUMAB
     Dosage: 1200 MG, 3/WEEK (CUMULATIVE DOSE TO FIRST REACTION: 118797.62 MG)
     Route: 058
     Dates: start: 20210819, end: 20221215
  86. ADO-TRASTUZUMAB EMTANSINE [Suspect]
     Active Substance: ADO-TRASTUZUMAB EMTANSINE
     Indication: HER2 positive breast cancer
     Dosage: 300 MG, 3/WEEK (CUMULATIVE DOSE TO FIRST REACTION: 18770.834 MG)
     Route: 042
     Dates: start: 20190716, end: 20190813
  87. ADO-TRASTUZUMAB EMTANSINE [Suspect]
     Active Substance: ADO-TRASTUZUMAB EMTANSINE
     Dosage: 300 MG, 3/WEEK (CUMULATIVE DOSE TO FIRST REACTION: 18770.834 MG)
     Route: 042
     Dates: start: 20190716, end: 20190813
  88. ADO-TRASTUZUMAB EMTANSINE [Suspect]
     Active Substance: ADO-TRASTUZUMAB EMTANSINE
     Dosage: 300 MG, 3/WEEK (CUMULATIVE DOSE TO FIRST REACTION: 18770.834 MG)
     Route: 042
     Dates: start: 20190716, end: 20190813
  89. ADO-TRASTUZUMAB EMTANSINE [Suspect]
     Active Substance: ADO-TRASTUZUMAB EMTANSINE
     Dosage: 260 MG, 3/WEEK (CUMULATIVE DOSE TO FIRST REACTION: 16627.104 MG)
     Route: 042
     Dates: start: 20190814, end: 20190903
  90. ADO-TRASTUZUMAB EMTANSINE [Suspect]
     Active Substance: ADO-TRASTUZUMAB EMTANSINE
     Dosage: 260 MG, 3/WEEK (CUMULATIVE DOSE TO FIRST REACTION: 16627.104 MG)
     Route: 042
     Dates: start: 20190814, end: 20190903
  91. ADO-TRASTUZUMAB EMTANSINE [Suspect]
     Active Substance: ADO-TRASTUZUMAB EMTANSINE
     Dosage: 260 MG, 3/WEEK (CUMULATIVE DOSE TO FIRST REACTION: 16627.104 MG)
     Route: 042
     Dates: start: 20190814, end: 20190903
  92. ADO-TRASTUZUMAB EMTANSINE [Suspect]
     Active Substance: ADO-TRASTUZUMAB EMTANSINE
     Dosage: 200 MG, 3/WEEK (CUMULATIVE DOSE TO FIRST REACTION: 12990.079 MG)
     Route: 042
     Dates: start: 20190904
  93. ADO-TRASTUZUMAB EMTANSINE [Suspect]
     Active Substance: ADO-TRASTUZUMAB EMTANSINE
     Dosage: 200 MG, 3/WEEK (CUMULATIVE DOSE TO FIRST REACTION: 12990.079 MG)
     Route: 042
     Dates: start: 20190904
  94. ADO-TRASTUZUMAB EMTANSINE [Suspect]
     Active Substance: ADO-TRASTUZUMAB EMTANSINE
     Dosage: 200 MG, 3/WEEK (CUMULATIVE DOSE TO FIRST REACTION: 12990.079 MG)
     Route: 042
     Dates: start: 20190904
  95. AMOXICILLIN [Concomitant]
     Active Substance: AMOXICILLIN
     Indication: Lower respiratory tract infection
     Dosage: 1500 MG, QD (CUMULATIVE DOSE TO FIRST REACTION: 1862937.5 MG)
     Route: 048
     Dates: start: 20190505, end: 20190509
  96. CARBOCYSTEINE [Concomitant]
     Active Substance: CARBOCYSTEINE
     Indication: Lower respiratory tract infection
     Dosage: 2250 MG, QD (CUMULATIVE DOSE TO FIRST REACTION: 2803406.2 MG)
     Route: 048
     Dates: start: 20190509, end: 20190515
  97. CLARITHROMYCIN [Concomitant]
     Active Substance: CLARITHROMYCIN
     Dosage: 1500 MG, QD (CUMULATIVE DOSE TO FIRST REACTION: 1123500.0 MG)
     Route: 048
     Dates: start: 20171228, end: 20180103
  98. AMOXICILLIN\CLAVULANATE POTASSIUM [Concomitant]
     Active Substance: AMOXICILLIN\CLAVULANATE POTASSIUM
     Indication: Lower respiratory tract infection
     Dosage: 1875 MG, QD (CUMULATIVE DOSE TO FIRST REACTION: 2336171.8 MG)
     Route: 048
     Dates: start: 20190509, end: 20190515
  99. DEXAMETHASONE [Concomitant]
     Active Substance: DEXAMETHASONE
     Dosage: 8 MG, 3 DAYS ONLY
     Route: 048
     Dates: start: 20150809, end: 20150811
  100. DEXAMETHASONE [Concomitant]
     Active Substance: DEXAMETHASONE
     Dosage: 8 MG, 3 DAYS ONLY
     Route: 048
     Dates: start: 20150902, end: 20150904
  101. DEXAMETHASONE [Concomitant]
     Active Substance: DEXAMETHASONE
     Dosage: 8 MG, 3 DAYS ONLY
     Route: 048
     Dates: start: 20151011, end: 20151013
  102. DEXAMETHASONE [Concomitant]
     Active Substance: DEXAMETHASONE
     Dosage: 8 MG, 3 DAYS ONLY
     Route: 048
     Dates: start: 20151015, end: 20151017
  103. DEXAMETHASONE [Concomitant]
     Active Substance: DEXAMETHASONE
     Dosage: 8 MG, 3 DAYS ONLY
     Route: 048
     Dates: start: 20151229, end: 20151231
  104. DEXAMETHASONE [Concomitant]
     Active Substance: DEXAMETHASONE
     Dosage: 8 MG, 3 DAYS ONLY
     Route: 048
     Dates: start: 20151229, end: 20151231
  105. FILGRASTIM [Concomitant]
     Active Substance: FILGRASTIM
     Dosage: FOR 5 DAYS ONLY
     Route: 058
     Dates: start: 20151203, end: 20151203
  106. FRAGMIN [Concomitant]
     Active Substance: DALTEPARIN SODIUM
     Dosage: 15000 UNIT EVERY DAY
     Route: 058
     Dates: start: 20150721, end: 201601
  107. GABAPENTIN [Concomitant]
     Active Substance: GABAPENTIN
     Dosage: 100 MG, ONE AT NIGHT
     Route: 048
     Dates: start: 20150921, end: 20150923
  108. GABAPENTIN [Concomitant]
     Active Substance: GABAPENTIN
     Dosage: 100 MG, 2 CAPSULES AT NIGHT
     Route: 048
     Dates: start: 20150924, end: 20150930
  109. GABAPENTIN [Concomitant]
     Active Substance: GABAPENTIN
     Dosage: 100 MG, 1 CAPSULE 3 DAYS THEN 2 CAPSULES 1 WEEK
     Route: 048
     Dates: start: 20150713, end: 20150722
  110. LANSOPRAZOLE [Concomitant]
     Active Substance: LANSOPRAZOLE
     Dosage: 30 MG, QD (CUMULATIVE DOSE TO FIRST REACTION: 4201.25 MG)
     Route: 048
     Dates: start: 20150723, end: 20150819
  111. LANSOPRAZOLE [Concomitant]
     Active Substance: LANSOPRAZOLE
     Dosage: 30 MG, ONCE A TABLET ONCE A DAY
     Route: 048
     Dates: start: 20150921
  112. LEVOTHYROXINE SODIUM [Concomitant]
     Active Substance: LEVOTHYROXINE SODIUM
     Dosage: 100 UG, ONE TABLET A DAYS
     Route: 048
     Dates: start: 20150723
  113. LEVOTHYROXINE SODIUM [Concomitant]
     Active Substance: LEVOTHYROXINE SODIUM
     Dosage: 50 UG, ONE A DAY
     Route: 048
     Dates: start: 20150723
  114. METOCLOPRAMIDE [Concomitant]
     Active Substance: METOCLOPRAMIDE
     Dosage: 8 MG, 1 DAY ONLY
     Route: 048
     Dates: start: 20151012, end: 20151012
  115. METOCLOPRAMIDE [Concomitant]
     Active Substance: METOCLOPRAMIDE
     Dosage: 10 MG, AS NEEDED
     Route: 048
     Dates: start: 20151015, end: 20151015
  116. MORPHINE [Concomitant]
     Active Substance: MORPHINE
     Dosage: 20 MG, QD, 2 TABLETS (CUMULATIVE DOSE TO FIRST REACTION: 1960.8334 MG)
     Route: 048
     Dates: start: 20150903, end: 20150903
  117. MORPHINE [Concomitant]
     Active Substance: MORPHINE
     Dosage: 10 MG, 2 TABLETS TWICE DAILY
     Route: 048
     Dates: start: 20150714, end: 20150714
  118. MORPHINE [Concomitant]
     Active Substance: MORPHINE
     Dosage: 20 MG, QD (CUMULATIVE DOSE TO FIRST REACTION: 1980.8334 MG)
     Route: 048
     Dates: start: 20150902, end: 20150902
  119. MORPHINE [Concomitant]
     Active Substance: MORPHINE
     Dosage: 20 MG, QD, 3 TABLETS (CUMULATIVE DOSE TO FIRST REACTION:  1940.8334 MG)
     Route: 048
     Dates: start: 20150904, end: 20151001
  120. MORPHINE [Concomitant]
     Active Substance: MORPHINE
     Dosage: 20 MG, QD, 2 TABLETS (CUMULATIVE DOSE TO FIRST REACTION:  2340.8333 MG)
     Route: 048
     Dates: start: 20150815, end: 20150815
  121. MORPHINE [Concomitant]
     Active Substance: MORPHINE
     Dosage: 20 MG, QD, 2 TABLETS (CUMULATIVE DOSE TO FIRST REACTION: 1960.8334 MG)
     Route: 048
     Dates: start: 20150903
  122. MORPHINE [Concomitant]
     Active Substance: MORPHINE
     Dosage: 20 MG, QD (CUMULATIVE DOSE TO FIRST REACTION: 3000.8333 MG)
     Route: 048
     Dates: start: 20150713, end: 20150713
  123. MORPHINE [Concomitant]
     Active Substance: MORPHINE
     Dosage: 30 MG, QD (CUMULATIVE DOSE TO FIRST REACTION: 4441.25 MG)
     Route: 048
     Dates: start: 20150715
  124. MORPHINE [Concomitant]
     Active Substance: MORPHINE
     Dosage: 20 MG, QD, 3 TABLETS (CUMULATIVE DOSE TO FIRST REACTION: 2320.8333 MG)
     Route: 048
     Dates: start: 20150816, end: 20150912
  125. MORPHINE SULFATE [Concomitant]
     Active Substance: MORPHINE SULFATE
     Dosage: 5 MG (2 PACKETS OF 100 MLS-5ML QDS)
     Route: 048
     Dates: start: 20150814
  126. NAPROXEN [Concomitant]
     Active Substance: NAPROXEN
     Dosage: 250 MG
     Route: 065
     Dates: start: 20200210
  127. ONDANSETRON [Concomitant]
     Active Substance: ONDANSETRON
     Dosage: 8 MG
     Route: 048
     Dates: start: 20150810, end: 20150810
  128. ONDANSETRON [Concomitant]
     Active Substance: ONDANSETRON
     Dosage: 8 MG, FOR ONE DAY ONLY
     Route: 048
     Dates: start: 20150903, end: 20150903
  129. ACETAMINOPHEN [Concomitant]
     Active Substance: ACETAMINOPHEN
     Dosage: 1 G, 1 DAY ONLY
     Route: 048
     Dates: start: 20150924, end: 20150924
  130. ACETAMINOPHEN [Concomitant]
     Active Substance: ACETAMINOPHEN
     Dosage: 1 G, 1 DAY ONLY
     Route: 048
     Dates: start: 20151203, end: 20151203
  131. ACETAMINOPHEN [Concomitant]
     Active Substance: ACETAMINOPHEN
     Dosage: 1 G, 1 DAY ONLY
     Route: 048
     Dates: start: 20151015, end: 20151015
  132. ACETAMINOPHEN [Concomitant]
     Active Substance: ACETAMINOPHEN
     Dosage: 1 G, ONE DAY ONLY
     Route: 048
     Dates: start: 20150810, end: 20150810
  133. ACETAMINOPHEN [Concomitant]
     Active Substance: ACETAMINOPHEN
     Dosage: 1 G, 1 DAY ONLY
     Route: 048
     Dates: start: 20150903, end: 20150903
  134. ALBUTEROL [Concomitant]
     Active Substance: ALBUTEROL
     Indication: Lower respiratory tract infection
     Dosage: PRN (AS NEEDED)
     Route: 048
     Dates: start: 20190509, end: 20190515
  135. SIMPLE LINCTUS [Concomitant]
     Active Substance: AMARANTH\CHLOROFORM\CITRIC ACID MONOHYDRATE\PIMPINELLA ANISUM WHOLE
     Indication: Influenza
     Dosage: 200 MG, 1 X 5 ML SPOON 3 TIMES A DAY
     Route: 048
     Dates: start: 20151104, end: 20151119
  136. SIMPLE LINCTUS [Concomitant]
     Active Substance: AMARANTH\CHLOROFORM\CITRIC ACID MONOHYDRATE\PIMPINELLA ANISUM WHOLE
     Dosage: 200 MG, 1 X 5 ML SPOON 3 TIMES A DAY
     Route: 048
     Dates: start: 20151109, end: 20151119
  137. ZOPICLONE [Concomitant]
     Active Substance: ZOPICLONE
     Dosage: 3.75 MG
     Route: 048
     Dates: start: 20150812, end: 20150908

REACTIONS (7)
  - General physical health deterioration [Not Recovered/Not Resolved]
  - Peripheral coldness [Recovered/Resolved]
  - Peripheral ischaemia [Recovering/Resolving]
  - Dry skin [Recovered/Resolved]
  - Fatigue [Recovered/Resolved]
  - Infected skin ulcer [Recovering/Resolving]
  - Localised infection [Recovered/Resolved]

NARRATIVE: CASE EVENT DATE: 20151210
